FAERS Safety Report 4577535-4 (Version None)
Quarter: 2005Q1

REPORT INFORMATION
  Report Type: 
  Country: None (occurrence: None)
  Receive Date: 20050208
  Receipt Date: 20050201
  Transmission Date: 20050727
  Serious: Yes (Death)
  Sender: FDA-Public Use
  Company Number: 2005SE00635

PATIENT
  Age: 80 Year
  Sex: Male

DRUGS (5)
  1. BLOPRESS [Suspect]
     Indication: HYPERTENSION
     Dates: end: 20050101
  2. OMEPRAL [Suspect]
  3. FURUSEMIDE [Concomitant]
  4. GRANDAXIN [Concomitant]
  5. SOLANAX [Concomitant]

REACTIONS (1)
  - HYPERKALAEMIA [None]
